FAERS Safety Report 10185637 (Version 1)
Quarter: 2014Q2

REPORT INFORMATION
  Report Type: Spontaneous
  Country: US (occurrence: None)
  Receive Date: 20140520
  Receipt Date: 20140520
  Transmission Date: 20141212
  Serious: No
  Sender: FDA-Public Use
  Company Number: None

PATIENT
  Sex: 0

DRUGS (1)
  1. TESTOSTERONE CYP [Suspect]
     Dates: start: 20140422, end: 20140422

REACTIONS (8)
  - Peripheral swelling [None]
  - Injection site rash [None]
  - Movement disorder [None]
  - Dyspnoea [None]
  - Somnolence [None]
  - Cellulitis [None]
  - Product contamination [None]
  - Inflammation [None]
